FAERS Safety Report 10279973 (Version 2)
Quarter: 2014Q3

REPORT INFORMATION
  Report Type: Spontaneous
  Country: FR (occurrence: FR)
  Receive Date: 20140707
  Receipt Date: 20140721
  Transmission Date: 20150326
  Serious: No
  Sender: FDA-Public Use
  Company Number: FR-JNJFOC-20140617904

PATIENT
  Age: 75 Year
  Sex: Female

DRUGS (1)
  1. DUROGESIC [Suspect]
     Active Substance: FENTANYL
     Indication: PRODUCT USED FOR UNKNOWN INDICATION
     Route: 062
     Dates: start: 20140610

REACTIONS (2)
  - Wrong technique in drug usage process [Unknown]
  - Product quality issue [Unknown]

NARRATIVE: CASE EVENT DATE: 20140611
